FAERS Safety Report 25558207 (Version 1)
Quarter: 2025Q3

REPORT INFORMATION
  Report Type: Report from Study
  Country: KR (occurrence: KR)
  Receive Date: 20250715
  Receipt Date: 20250715
  Transmission Date: 20251020
  Serious: Yes (Hospitalization, Other)
  Sender: SUNOVION
  Company Number: KR-BIAL-BIAL-15680

PATIENT

DRUGS (50)
  1. ESLICARBAZEPINE ACETATE [Suspect]
     Active Substance: ESLICARBAZEPINE ACETATE
     Indication: Epilepsy
     Dosage: 300 MILLIGRAM, QD
     Route: 048
     Dates: start: 20230426, end: 20230428
  2. ESLICARBAZEPINE ACETATE [Suspect]
     Active Substance: ESLICARBAZEPINE ACETATE
     Dosage: 400 MILLIGRAM, QD
     Route: 048
     Dates: start: 20230429, end: 20230508
  3. ESLICARBAZEPINE ACETATE [Suspect]
     Active Substance: ESLICARBAZEPINE ACETATE
     Dosage: 600 MILLIGRAM, QD
     Route: 048
     Dates: start: 20230509, end: 20230515
  4. ESLICARBAZEPINE ACETATE [Suspect]
     Active Substance: ESLICARBAZEPINE ACETATE
     Dosage: 800 MILLIGRAM, QD
     Route: 048
     Dates: start: 20230516, end: 20230529
  5. ESLICARBAZEPINE ACETATE [Suspect]
     Active Substance: ESLICARBAZEPINE ACETATE
     Dosage: 600 MILLIGRAM, QD
     Route: 048
     Dates: start: 20230530, end: 20230710
  6. ESLICARBAZEPINE ACETATE [Suspect]
     Active Substance: ESLICARBAZEPINE ACETATE
     Dosage: 800 MILLIGRAM, QD
     Route: 048
     Dates: start: 20230711, end: 20230918
  7. ESLICARBAZEPINE ACETATE [Suspect]
     Active Substance: ESLICARBAZEPINE ACETATE
     Dosage: 1000 MILLIGRAM, QD
     Route: 048
     Dates: start: 20230919
  8. Dexamethasone daewon [Concomitant]
     Indication: MELAS syndrome
     Dosage: 1 DOSAGE FORM, QD
     Route: 042
     Dates: start: 20230426, end: 20230427
  9. GASTER [Concomitant]
     Active Substance: FAMOTIDINE
     Indication: Prophylaxis
     Dosage: 1 DOSAGE FORM, BID
     Route: 048
     Dates: start: 20230426
  10. Ramnos [Concomitant]
     Indication: Prophylaxis
     Dosage: 1 DOSAGE FORM, BID
     Route: 048
     Dates: start: 20230426, end: 20230530
  11. URSODIOL [Concomitant]
     Active Substance: URSODIOL
     Indication: Hepatic steatosis
     Dosage: 1 DOSAGE FORM, BID
     Route: 048
     Dates: start: 20230426
  12. Lipitor plus [Concomitant]
     Indication: Hyperlipidaemia
     Dosage: 1 DOSAGE FORM, QD
     Route: 048
     Dates: start: 20230426, end: 20230621
  13. Dicamax [Concomitant]
     Indication: Prophylaxis
     Dosage: 1 DOSAGE FORM, QD
     Route: 048
     Dates: start: 20230426, end: 20230708
  14. Tasna [Concomitant]
     Indication: Prophylaxis
     Dosage: 1 DOSAGE FORM, BID
     Route: 048
     Dates: start: 20230426
  15. Beecom [Concomitant]
     Indication: Prophylaxis
     Dosage: 1 DOSAGE FORM, BID
     Route: 048
     Dates: start: 20230426
  16. Decaquinon [Concomitant]
     Indication: MELAS syndrome
     Dosage: 3.5 DOSAGE FORM, TID
     Route: 048
     Dates: start: 20230426
  17. THIAMINE HYDROCHLORIDE [Concomitant]
     Active Substance: THIAMINE HYDROCHLORIDE
     Indication: Prophylaxis
     Dosage: 4 DOSAGE FORM, TID
     Route: 048
     Dates: start: 20230426
  18. Feroba you sr [Concomitant]
     Indication: MELAS syndrome
     Dosage: 1 DOSAGE FORM, QD
     Route: 048
     Dates: start: 20230426
  19. FYCOMPA [Concomitant]
     Active Substance: PERAMPANEL
     Indication: Epilepsy
     Dosage: 1 DOSAGE FORM, QD
     Route: 048
     Dates: start: 20230426
  20. Arginine veyron [Concomitant]
     Indication: MELAS syndrome
     Dosage: 0.5 DOSAGE FORM, BID
     Route: 048
     Dates: start: 20230426, end: 20230430
  21. LAMICTAL [Concomitant]
     Active Substance: LAMOTRIGINE
     Indication: Epilepsy
     Dosage: 0.75 DOSAGE FORM, BID
     Route: 048
     Dates: start: 20230426, end: 20230428
  22. LAMICTAL [Concomitant]
     Active Substance: LAMOTRIGINE
     Indication: Epilepsy
     Dosage: 1 DOSAGE FORM, BID
     Route: 048
     Dates: start: 20230429, end: 20230530
  23. DIAZEPAM [Concomitant]
     Active Substance: DIAZEPAM
     Indication: Epilepsy
     Dosage: 1 DOSAGE FORM, QD
     Route: 042
     Dates: start: 20230429, end: 20230429
  24. Solondo [Concomitant]
     Indication: MELAS syndrome
     Dosage: 1 DOSAGE FORM, TID
     Route: 048
     Dates: start: 20230428, end: 20230512
  25. L-carn [Concomitant]
     Indication: Prophylaxis
     Dosage: 3 DOSAGE FORM, TID
     Route: 048
     Dates: start: 20230427
  26. Lipilou [Concomitant]
     Indication: Hyperlipidaemia
     Dosage: 1 DOSAGE FORM, QD
     Route: 048
     Dates: start: 20230622
  27. ORNITHINE ASPARTATE [Concomitant]
     Active Substance: ORNITHINE ASPARTATE
     Indication: Hepatic steatosis
     Dosage: 1 DOSAGE FORM, BID
     Route: 042
     Dates: start: 20230515, end: 20230530
  28. VITAMINS [Concomitant]
     Active Substance: VITAMINS
     Indication: Prophylaxis
     Dosage: 0.5 DOSAGE FORM, BID
     Route: 042
     Dates: start: 20230515, end: 20230530
  29. Godex [Concomitant]
     Indication: Hepatic steatosis
     Dosage: 1 DOSAGE FORM, BID
     Route: 048
     Dates: start: 20230516, end: 20230722
  30. Circatonin pr [Concomitant]
     Indication: Unevaluable event
     Dosage: 3 DOSAGE FORM, QD
     Route: 048
     Dates: start: 20230517, end: 20230517
  31. KEPPRA [Concomitant]
     Active Substance: LEVETIRACETAM
     Indication: Epilepsy
     Dosage: 0.5 DOSAGE FORM, BID
     Route: 048
     Dates: start: 20230523, end: 20230526
  32. PYRIDOXINE HYDROCHLORIDE [Concomitant]
     Active Substance: PYRIDOXINE HYDROCHLORIDE
     Indication: Prophylaxis
     Dosage: 1 DOSAGE FORM, BID
     Route: 048
     Dates: start: 20230524, end: 20230609
  33. Dexamethasone daewon [Concomitant]
     Indication: Prophylaxis
     Route: 042
     Dates: start: 20230525, end: 20230529
  34. ZONISAMIDE [Concomitant]
     Active Substance: ZONISAMIDE
     Indication: Epilepsy
     Dosage: 0.5 DOSAGE FORM, BID
     Route: 048
     Dates: start: 20230519, end: 20230526
  35. Solondo [Concomitant]
     Indication: Prophylaxis
     Dosage: 2.5 DOSAGE FORM, BID
     Route: 048
     Dates: start: 20230529, end: 20230611
  36. CYANOCOBALAMIN\PYRIDOXINE HYDROCHLORIDE\THIAMINE [Concomitant]
     Active Substance: CYANOCOBALAMIN\PYRIDOXINE HYDROCHLORIDE\THIAMINE
     Indication: Prophylaxis
     Dosage: 1 DOSAGE FORM, BID
     Route: 048
     Dates: start: 20230613
  37. Dexamethasone daewon [Concomitant]
     Indication: Prophylaxis
     Route: 042
     Dates: start: 20230623, end: 20230628
  38. RIVOTRIL [Concomitant]
     Active Substance: CLONAZEPAM
     Indication: Epilepsy
     Dosage: 1 DOSAGE FORM, QD
     Route: 042
     Dates: start: 20230626
  39. ZONISAMIDE [Concomitant]
     Active Substance: ZONISAMIDE
     Indication: Epilepsy
     Dosage: 1 DOSAGE FORM, BID
     Route: 048
     Dates: start: 20230528, end: 20230623
  40. ZONISAMIDE [Concomitant]
     Active Substance: ZONISAMIDE
     Dosage: 1.5 DOSAGE FORM, BID
     Route: 048
     Dates: start: 20230624, end: 20230707
  41. ZONISAMIDE [Concomitant]
     Active Substance: ZONISAMIDE
     Dosage: 0.75 DOSAGE FORM, BID
     Route: 048
     Dates: start: 20230708, end: 20230708
  42. ZONISAMIDE [Concomitant]
     Active Substance: ZONISAMIDE
     Dosage: 0.5 DOSAGE FORM, BID
     Route: 048
     Dates: start: 20230709, end: 20230709
  43. ZONISAMIDE [Concomitant]
     Active Substance: ZONISAMIDE
     Dosage: 0.25 DOSAGE FORM, BID
     Route: 048
     Dates: start: 20230710, end: 20230710
  44. HARNAL [Concomitant]
     Active Substance: TAMSULOSIN HYDROCHLORIDE
     Indication: Prophylaxis
     Dosage: 0.75 DOSAGE FORM, QD
     Route: 048
     Dates: start: 20230708, end: 20230710
  45. FYCOMPA [Concomitant]
     Active Substance: PERAMPANEL
     Indication: Epilepsy
     Dosage: 1 DOSAGE FORM, QD
     Route: 048
     Dates: start: 20230709, end: 20230918
  46. FYCOMPA [Concomitant]
     Active Substance: PERAMPANEL
     Indication: Epilepsy
     Dosage: 1 DOSAGE FORM, QD
     Route: 048
     Dates: start: 20230919
  47. Dichlozid [Concomitant]
     Indication: Diuretic therapy
     Dosage: 1 DOSAGE FORM, QD
     Route: 048
     Dates: start: 20230710, end: 20231023
  48. Urocitra k [Concomitant]
     Indication: Prophylaxis
     Dosage: 1 DOSAGE FORM, QD
     Route: 048
     Dates: start: 20230710, end: 20231023
  49. DEFLAZACORT [Concomitant]
     Active Substance: DEFLAZACORT
     Indication: Prophylaxis
     Dosage: 1 DOSAGE FORM, BID
     Route: 048
     Dates: start: 20230509, end: 20230807
  50. DEFLAZACORT [Concomitant]
     Active Substance: DEFLAZACORT
     Dosage: 0.5 DOSAGE FORM, BID
     Route: 048
     Dates: start: 20230808

REACTIONS (8)
  - Febrile convulsion [Recovered/Resolved]
  - Seizure [Recovered/Resolved]
  - Abdominal pain [Recovered/Resolved]
  - Asthenia [Recovered/Resolved]
  - Hyponatraemia [Recovered/Resolved]
  - Underdose [Unknown]
  - Underdose [Unknown]
  - Drug titration error [Unknown]

NARRATIVE: CASE EVENT DATE: 20230426
